FAERS Safety Report 11234777 (Version 1)
Quarter: 2015Q2

REPORT INFORMATION
  Report Type: Spontaneous
  Country: US (occurrence: None)
  Receive Date: 20150630
  Receipt Date: 20150630
  Transmission Date: 20150821
  Serious: Yes (Other)
  Sender: FDA-Public Use
  Company Number: 2015NUEUSA00525

PATIENT
  Age: 38 Year
  Sex: Female

DRUGS (5)
  1. ROZEREM (RAMELTEON) [Concomitant]
  2. AMBIEN (ZOLPIDEM TARTRATE0 [Concomitant]
  3. EMSAM [Suspect]
     Active Substance: SELEGILINE
     Indication: BIPOLAR DISORDER
     Dates: start: 201412
  4. NUEDEXTA [Suspect]
     Active Substance: DEXTROMETHORPHAN HYDROBROMIDE\QUINIDINE SULFATE
     Indication: AFFECT LABILITY
     Dosage: 1 CAP, QD
     Dates: start: 20150326, end: 2015
  5. XANAX [Concomitant]
     Active Substance: ALPRAZOLAM

REACTIONS (2)
  - Loss of consciousness [None]
  - Labelled drug-drug interaction medication error [None]

NARRATIVE: CASE EVENT DATE: 201505
